FAERS Safety Report 4415920-1 (Version None)
Quarter: 2004Q3

REPORT INFORMATION
  Report Type: 
  Country: None (occurrence: None)
  Receive Date: 20040805
  Receipt Date: 20040610
  Transmission Date: 20050211
  Serious: No
  Sender: FDA-Public Use
  Company Number: US-GLAXOSMITHKLINE-A0514129A

PATIENT
  Sex: Female

DRUGS (4)
  1. AVANDAMET [Suspect]
     Dosage: 2MG TWICE PER DAY
     Route: 048
     Dates: start: 20040501
  2. GLIPIZIDE [Concomitant]
  3. BLOOD PRESSURE MEDICATION [Concomitant]
  4. TYLENOL [Concomitant]

REACTIONS (1)
  - HEADACHE [None]
